FAERS Safety Report 17798449 (Version 1)
Quarter: 2020Q2

REPORT INFORMATION
  Report Type: Spontaneous
  Country: DE (occurrence: DE)
  Receive Date: 20200518
  Receipt Date: 20200518
  Transmission Date: 20200714
  Serious: Yes (Hospitalization)
  Sender: FDA-Public Use
  Company Number: DE-TEVA-2020-DE-1235419

PATIENT
  Age: 74 Year
  Sex: Male
  Weight: 70 kg

DRUGS (8)
  1. TORASEMID [Suspect]
     Active Substance: TORSEMIDE
     Dosage: 5 MILLIGRAM DAILY; 1-0-0-0
     Route: 048
  2. AMLODIPIN/ANDESARTAN [Concomitant]
     Dosage: 1 DOSAGE FORMS DAILY; 5 | 16 MG, 1-0-0-0, CAPSULES,
     Route: 048
  3. INSULIN [Concomitant]
     Active Substance: INSULIN NOS
     Dosage: NK IE, 0-0-6-0,6 IU
     Route: 058
  4. DESLORATADIN [Concomitant]
     Active Substance: DESLORATADINE
     Dosage: 5 MILLIGRAM DAILY;  1-0-0-0
     Route: 048
  5. TAMSULOSIN [Concomitant]
     Active Substance: TAMSULOSIN
     Dosage: 1 DOSAGE FORMS DAILY; NK MG, 1-0-0-0,
     Route: 048
  6. SITAGLIPTIN [Concomitant]
     Active Substance: SITAGLIPTIN
     Dosage: 50 MILLIGRAM DAILY;  1-0-0-0,
     Route: 048
  7. GLIBENCLAMID [Concomitant]
     Active Substance: GLYBURIDE
     Dosage: 1.75 MILLIGRAM DAILY; 3.5 MG, 0.5-0-0-0
     Route: 048
  8. METAMIZOL [Concomitant]
     Active Substance: METAMIZOLE SODIUM
     Dosage: 500 MG, 0-0-20-0, TROPFEN, 20 GTT
     Route: 048

REACTIONS (2)
  - Blood creatinine increased [Unknown]
  - Condition aggravated [Unknown]
